FAERS Safety Report 17667294 (Version 1)
Quarter: 2020Q2

REPORT INFORMATION
  Report Type: Report from Study
  Country: FR (occurrence: FR)
  Receive Date: 20200414
  Receipt Date: 20200414
  Transmission Date: 20200713
  Serious: Yes (Other)
  Sender: FDA-Public Use
  Company Number: FR-MYLANLABS-2020M1037480

PATIENT
  Sex: Male
  Weight: 63 kg

DRUGS (8)
  1. TENOFOVIR DISOPROXIL [Suspect]
     Active Substance: TENOFOVIR DISOPROXIL
     Indication: HIV INFECTION
     Dosage: UNK
     Route: 065
     Dates: start: 20010705, end: 20010926
  2. TENOFOVIR DISOPROXIL [Suspect]
     Active Substance: TENOFOVIR DISOPROXIL
     Dosage: UNK
     Route: 065
     Dates: start: 20020402, end: 20030115
  3. VIDEX [Concomitant]
     Active Substance: DIDANOSINE
     Dosage: UNK
     Dates: start: 20000615, end: 20020913
  4. EPIVIR [Concomitant]
     Active Substance: LAMIVUDINE
     Dosage: UNK
     Dates: start: 20020913, end: 20040331
  5. INVIRASE [Concomitant]
     Active Substance: SAQUINAVIR MESYLATE
     Dosage: UNK
     Dates: start: 20020402, end: 20040331
  6. KALETRA [Concomitant]
     Active Substance: LOPINAVIR\RITONAVIR
     Dosage: UNK
     Dates: start: 20000615, end: 20040331
  7. ZIAGEN [Concomitant]
     Active Substance: ABACAVIR SULFATE
     Dosage: UNK
     Dates: start: 20020913, end: 20060105
  8. FUZEON [Concomitant]
     Active Substance: ENFUVIRTIDE
     Dosage: UNK
     Dates: start: 20020612, end: 20050706

REACTIONS (3)
  - Genotype drug resistance test positive [Unknown]
  - Virologic failure [Unknown]
  - Renal disorder [Unknown]
